FAERS Safety Report 11740521 (Version 1)
Quarter: 2015Q4

REPORT INFORMATION
  Report Type: Spontaneous
  Country: US (occurrence: US)
  Receive Date: 20151110
  Receipt Date: 20151110
  Transmission Date: 20160304
  Serious: No
  Sender: FDA-Public Use
  Company Number: US-ELI_LILLY_AND_COMPANY-US201110000365

PATIENT
  Sex: Female

DRUGS (6)
  1. FORTEO [Suspect]
     Active Substance: TERIPARATIDE
     Dosage: UNK, UNKNOWN
     Route: 065
  2. ADVIL [Concomitant]
     Active Substance: IBUPROFEN
  3. TRAMADOL. [Concomitant]
     Active Substance: TRAMADOL
  4. CITRACAL [Concomitant]
     Active Substance: CALCIUM CITRATE
  5. LIBRIUM [Concomitant]
     Active Substance: CHLORDIAZEPOXIDE HYDROCHLORIDE
  6. OMEPRAZOLE. [Concomitant]
     Active Substance: OMEPRAZOLE

REACTIONS (4)
  - Intentional product misuse [Unknown]
  - Parosmia [Unknown]
  - Balance disorder [Unknown]
  - Dizziness [Unknown]
